FAERS Safety Report 6736876-2 (Version None)
Quarter: 2010Q2

REPORT INFORMATION
  Report Type: 
  Country: None (occurrence: None)
  Receive Date: 20100521
  Receipt Date: 20100511
  Transmission Date: 20101027
  Serious: Yes (Hospitalization, Other)
  Sender: FDA-Public Use
  Company Number: PHHY2010ES31624

PATIENT
  Age: 77 Year
  Sex: Female

DRUGS (5)
  1. CYCLOSPORINE [Suspect]
     Indication: PARANEOPLASTIC PEMPHIGUS
     Dosage: 3 MG/KG/DAY
     Route: 048
     Dates: start: 20010101, end: 20020301
  2. METHYLPREDNISOLONE [Concomitant]
     Dosage: 90 MG/DAY
     Route: 042
     Dates: start: 20010101
  3. METHYLPREDNISOLONE [Concomitant]
     Dosage: 40 MG/DAY
     Dates: start: 20020301
  4. RITUXIMAB [Concomitant]
     Indication: PARANEOPLASTIC PEMPHIGUS
     Dosage: 375 MG/M2/WEEK
     Dates: start: 20011101, end: 20011201
  5. RITUXIMAB [Concomitant]
     Indication: LYMPHOMA

REACTIONS (8)
  - DIARRHOEA [None]
  - HYPOPHAGIA [None]
  - LISTERIA SEPSIS [None]
  - MOUTH ULCERATION [None]
  - MYOPATHY [None]
  - PARENTERAL NUTRITION [None]
  - PYREXIA [None]
  - STOMATITIS [None]
